FAERS Safety Report 13002155 (Version 3)
Quarter: 2017Q3

REPORT INFORMATION
  Report Type: Spontaneous
  Country: US (occurrence: US)
  Receive Date: 20161206
  Receipt Date: 20170814
  Transmission Date: 20171127
  Serious: Yes (Death, Other)
  Sender: FDA-Public Use
  Company Number: US-TEVA-717640USA

PATIENT
  Age: 77 Year
  Sex: Male

DRUGS (25)
  1. ASPIRIN. [Concomitant]
     Active Substance: ASPIRIN
  2. LASIX [Concomitant]
     Active Substance: FUROSEMIDE
  3. XTANDI [Suspect]
     Active Substance: ENZALUTAMIDE
     Indication: HORMONE-REFRACTORY PROSTATE CANCER
     Dosage: 160 MILLIGRAM DAILY;
     Route: 048
     Dates: start: 201307
  4. PLAVIX [Concomitant]
     Active Substance: CLOPIDOGREL BISULFATE
  5. KLOR-CON [Concomitant]
     Active Substance: POTASSIUM CHLORIDE
  6. CARDIZEM [Concomitant]
     Active Substance: DILTIAZEM HYDROCHLORIDE
  7. GABAPENTIN. [Suspect]
     Active Substance: GABAPENTIN
     Route: 065
  8. AMOXICILLIN. [Concomitant]
     Active Substance: AMOXICILLIN
  9. MONTELUKAST [Concomitant]
     Active Substance: MONTELUKAST SODIUM
  10. POTASSIUM [Concomitant]
     Active Substance: POTASSIUM
  11. PROTONIX [Concomitant]
     Active Substance: PANTOPRAZOLE SODIUM
  12. SODIUM [Concomitant]
     Active Substance: SODIUM
  13. XTANDI [Suspect]
     Active Substance: ENZALUTAMIDE
     Indication: BONE CANCER
     Dosage: 160 MILLIGRAM DAILY;
     Route: 048
     Dates: start: 20140212
  14. OXYCODONE [Concomitant]
     Active Substance: OXYCODONE
  15. PANTOPRAZOLE [Concomitant]
     Active Substance: PANTOPRAZOLE
  16. OXYCODONE AND ACETAMINOPHEN [Concomitant]
     Active Substance: ACETAMINOPHEN\OXYCODONE HYDROCHLORIDE
  17. CEFUROXIME. [Concomitant]
     Active Substance: CEFUROXIME
  18. DILTIAZEM. [Concomitant]
     Active Substance: DILTIAZEM
  19. MULTIVITAMINS [Concomitant]
     Active Substance: VITAMINS
  20. ELIQUIS [Concomitant]
     Active Substance: APIXABAN
  21. ALPHA LIPOIC ACID [Concomitant]
     Active Substance: .ALPHA.-LIPOIC ACID
  22. SINGULAIR [Concomitant]
     Active Substance: MONTELUKAST SODIUM
  23. FUROSEMIDE. [Concomitant]
     Active Substance: FUROSEMIDE
  24. TAMSULOSIN [Concomitant]
     Active Substance: TAMSULOSIN
  25. BENZONATATE. [Concomitant]
     Active Substance: BENZONATATE

REACTIONS (9)
  - Influenza [Unknown]
  - Prostatic specific antigen increased [Not Recovered/Not Resolved]
  - Muscular weakness [Unknown]
  - Atrial fibrillation [Unknown]
  - Appendicectomy [Unknown]
  - Death [Fatal]
  - Diverticulitis [Recovered/Resolved]
  - Peripheral swelling [Recovered/Resolved]
  - Androgen deficiency [Unknown]

NARRATIVE: CASE EVENT DATE: 201509
